FAERS Safety Report 9553717 (Version 1)
Quarter: 2013Q3

REPORT INFORMATION
  Report Type: Spontaneous
  Country: US (occurrence: None)
  Receive Date: 20130924
  Receipt Date: 20130924
  Transmission Date: 20140515
  Serious: Yes (Disabling)
  Sender: FDA-Public Use
  Company Number: None

PATIENT
  Age: 70 Year
  Sex: Male
  Weight: 79.38 kg

DRUGS (1)
  1. LEVOFLOXICIN [Suspect]
     Indication: BRONCHITIS
     Route: 048
     Dates: start: 20130910, end: 20130914

REACTIONS (7)
  - Post-traumatic pain [None]
  - Arthralgia [None]
  - Arthralgia [None]
  - Tendonitis [None]
  - Musculoskeletal pain [None]
  - Pain in extremity [None]
  - Arthralgia [None]
